FAERS Safety Report 7512022-2 (Version None)
Quarter: 2011Q2

REPORT INFORMATION
  Report Type: 
  Country: None (occurrence: None)
  Receive Date: 20110531
  Receipt Date: 20110517
  Transmission Date: 20111010
  Serious: Yes (Hospitalization)
  Sender: FDA-Public Use
  Company Number: PHHY2011FR43578

PATIENT
  Sex: Female

DRUGS (8)
  1. CIPROFLOXACIN [Suspect]
     Indication: ULCER
     Dosage: UNK
     Route: 048
     Dates: start: 20110206, end: 20110212
  2. ACETAMINOPHEN [Concomitant]
     Dosage: UNK
     Route: 048
  3. DURAGESIC-100 [Suspect]
     Dosage: 37.5 UG, EVERY 3 DAYS
     Dates: end: 20110212
  4. PREVISCAN [Concomitant]
     Dosage: 10 MG, QD
     Route: 048
  5. VALSARTAN [Suspect]
     Dosage: 80 MG, QD
     Route: 048
     Dates: end: 20110212
  6. FUROSEMIDE [Suspect]
     Dosage: 20 MG, QD
     Route: 048
     Dates: end: 20110212
  7. FUROSEMIDE [Suspect]
     Dosage: UNK
  8. BACTRIM [Suspect]
     Indication: ULCER
     Dosage: UNK
     Route: 048
     Dates: start: 20110206, end: 20110212

REACTIONS (9)
  - URINARY INCONTINENCE [None]
  - DECREASED APPETITE [None]
  - HYPOTENSION [None]
  - GENERAL PHYSICAL CONDITION ABNORMAL [None]
  - CONFUSIONAL STATE [None]
  - FALL [None]
  - RENAL FAILURE [None]
  - DEHYDRATION [None]
  - RENAL FAILURE ACUTE [None]
